FAERS Safety Report 7148884-0 (Version None)
Quarter: 2010Q4

REPORT INFORMATION
  Report Type: 
  Country: None (occurrence: None)
  Receive Date: 20101209
  Receipt Date: 20101203
  Transmission Date: 20110411
  Serious: Yes (Hospitalization)
  Sender: FDA-Public Use
  Company Number: US-AMGEN-KDL437367

PATIENT

DRUGS (2)
  1. ENBREL [Suspect]
     Indication: RHEUMATOID ARTHRITIS
     Dosage: 50 MG, QWK
     Route: 058
     Dates: end: 20100906
  2. ENBREL [Suspect]
     Dosage: 50 MG, QWK
     Dates: start: 20100401

REACTIONS (34)
  - APHONIA [None]
  - ARTHRALGIA [None]
  - BACK PAIN [None]
  - BREAST INDURATION [None]
  - BREAST PAIN [None]
  - BREAST SWELLING [None]
  - CHEST PAIN [None]
  - CHROMATURIA [None]
  - DECREASED APPETITE [None]
  - EPISTAXIS [None]
  - FATIGUE [None]
  - GOITRE [None]
  - HEADACHE [None]
  - HEART RATE DECREASED [None]
  - HEPATOMEGALY [None]
  - HYPOPHAGIA [None]
  - HYPOTENSION [None]
  - INJECTION SITE ERYTHEMA [None]
  - INJECTION SITE PAIN [None]
  - INJECTION SITE PRURITUS [None]
  - INJECTION SITE REACTION [None]
  - INJECTION SITE SWELLING [None]
  - INJECTION SITE WARMTH [None]
  - INSOMNIA [None]
  - JAUNDICE [None]
  - JOINT SWELLING [None]
  - LYMPHADENOPATHY [None]
  - MOBILITY DECREASED [None]
  - MUSCLE SPASMS [None]
  - NIPPLE PAIN [None]
  - PALLOR [None]
  - PRURITUS [None]
  - PYREXIA [None]
  - VISION BLURRED [None]
